FAERS Safety Report 7807259-9 (Version None)
Quarter: 2011Q4

REPORT INFORMATION
  Report Type: 
  Country: None (occurrence: None)
  Receive Date: 20111011
  Receipt Date: 20111006
  Transmission Date: 20120403
  Serious: Yes (Hospitalization, Other)
  Sender: FDA-Public Use
  Company Number: US-PFIZER INC-2011059070

PATIENT
  Sex: Female

DRUGS (5)
  1. AMLODIPINE [Concomitant]
     Indication: HYPERTENSION
     Dosage: UNK
     Dates: start: 20070101
  2. CHANTIX [Suspect]
     Indication: SMOKING CESSATION THERAPY
     Dosage: 1 MG, UNK
     Dates: start: 20070714, end: 20080701
  3. CRESTOR [Concomitant]
     Indication: BLOOD CHOLESTEROL
     Dosage: UNK
     Dates: start: 20070101
  4. MICARDIS [Concomitant]
     Indication: HYPERTENSION
     Dosage: UNK
     Dates: start: 20070101, end: 20100101
  5. HALDOL [Concomitant]
     Indication: BIPOLAR DISORDER
     Dosage: UNK
     Dates: start: 19970101

REACTIONS (9)
  - MENTAL DISORDER [None]
  - PSYCHOTIC DISORDER [None]
  - IMPAIRED DRIVING ABILITY [None]
  - SUICIDAL BEHAVIOUR [None]
  - AGGRESSION [None]
  - ANXIETY [None]
  - DEPRESSION [None]
  - ABNORMAL BEHAVIOUR [None]
  - EMOTIONAL DISTRESS [None]
